FAERS Safety Report 7203913-0 (Version None)
Quarter: 2010Q4

REPORT INFORMATION
  Report Type: 
  Country: None (occurrence: None)
  Receive Date: 20101230
  Receipt Date: 20101029
  Transmission Date: 20110411
  Serious: Yes (Hospitalization)
  Sender: FDA-Public Use
  Company Number: US-ASTRAZENECA-2010SE51258

PATIENT
  Age: 21659 Day
  Sex: Male
  Weight: 111 kg

DRUGS (8)
  1. ONGLYZA [Suspect]
     Indication: DIABETES MELLITUS
     Route: 048
     Dates: start: 20100726
  2. METFORMIN HCL [Suspect]
     Indication: DIABETES MELLITUS
     Route: 048
     Dates: start: 20070101
  3. ATENOLOL [Suspect]
  4. SIMVASTATIN [Suspect]
     Route: 048
     Dates: start: 20080101
  5. AMLODIPINE [Suspect]
  6. GODAMED [Suspect]
  7. TORSEMIDE [Suspect]
  8. ENALAPRIL MALEATE [Suspect]

REACTIONS (6)
  - ASCITES [None]
  - BLOOD ALBUMIN DECREASED [None]
  - BLOOD BILIRUBIN INCREASED [None]
  - GAMMA-GLUTAMYLTRANSFERASE INCREASED [None]
  - LEUKOCYTOSIS [None]
  - TRANSAMINASES INCREASED [None]
